FAERS Safety Report 7415292-4 (Version None)
Quarter: 2011Q2

REPORT INFORMATION
  Report Type: 
  Country: None (occurrence: None)
  Receive Date: 20110411
  Receipt Date: 20110322
  Transmission Date: 20111010
  Serious: Yes (Hospitalization)
  Sender: FDA-Public Use
  Company Number: JPI-P-014289

PATIENT
  Age: 51 Year
  Sex: Female
  Weight: 52.1637 kg

DRUGS (25)
  1. RABEPRAZOLE SODIUM [Concomitant]
  2. MEDROXYPROGESTERONE [Concomitant]
  3. SERTRALINE [Concomitant]
  4. VITAMIN B COMPLEX CAP [Concomitant]
  5. METHYLCELLULOSE [Concomitant]
  6. NIACIN [Concomitant]
  7. GELATIN [Concomitant]
  8. PREGABALIN [Concomitant]
  9. CALCIUM [Concomitant]
  10. FISH OIL [Concomitant]
  11. XYREM [Suspect]
     Indication: SLEEP DISORDER
     Dosage: 4.5 GM (2.25 GM, 2 IN 1 D), ORAL; 9 GM (4.5 GM, 2 IN 1 D), ORAL
     Route: 048
     Dates: start: 20101103, end: 20110126
  12. XYREM [Suspect]
     Indication: SLEEP DISORDER
     Dosage: 4.5 GM (2.25 GM, 2 IN 1 D), ORAL; 9 GM (4.5 GM, 2 IN 1 D), ORAL
     Route: 048
     Dates: start: 20060518
  13. XYREM [Suspect]
     Indication: SLEEP DISORDER
     Dosage: 4.5 GM (2.25 GM, 2 IN 1 D), ORAL; 9 GM (4.5 GM, 2 IN 1 D), ORAL
     Route: 048
     Dates: start: 20110101, end: 20110319
  14. XYREM [Suspect]
     Indication: SLEEP DISORDER
     Dosage: 4.5 GM (2.25 GM, 2 IN 1 D), ORAL; 9 GM (4.5 GM, 2 IN 1 D), ORAL
     Route: 048
     Dates: start: 20110101, end: 20110203
  15. DICLOFENAC SODIUM AND MISOPROSTOL [Suspect]
     Indication: PRODUCT USED FOR UNKNOWN INDICATION
     Dates: start: 20050901, end: 20110203
  16. MONTELUKAST [Concomitant]
  17. TIOTROPIUM [Concomitant]
  18. DICYCLOMINE [Concomitant]
  19. MOMETASONE FUROATE MONOHYDRATE [Concomitant]
  20. ALBUERTOL SULFATE [Concomitant]
  21. MULTI-VITAMIN [Concomitant]
  22. MAGNESIUM HYDROXIDE [Concomitant]
  23. VITAMIN D [Concomitant]
  24. L-LYSINE [Concomitant]
  25. GLUCOSAMINE [Concomitant]

REACTIONS (7)
  - GASTROINTESTINAL OEDEMA [None]
  - CONDITION AGGRAVATED [None]
  - BILE DUCT STENOSIS [None]
  - BACK PAIN [None]
  - BILE DUCT OBSTRUCTION [None]
  - GASTRITIS EROSIVE [None]
  - LIVER FUNCTION TEST ABNORMAL [None]
